FAERS Safety Report 5673315-7 (Version None)
Quarter: 2008Q1

REPORT INFORMATION
  Report Type: 
  Country: None (occurrence: None)
  Receive Date: 20080319
  Receipt Date: 20080313
  Transmission Date: 20080703
  Serious: Yes (Hospitalization, Other)
  Sender: FDA-Public Use
  Company Number: HQWYE089226OCT04

PATIENT
  Sex: Female

DRUGS (3)
  1. PREMPRO [Suspect]
  2. LOESTRIN 1.5/30 [Suspect]
  3. MEDROXYPROGESTERONE ACETATE [Suspect]

REACTIONS (1)
  - BREAST CANCER METASTATIC [None]
